FAERS Safety Report 5006151-5 (Version None)
Quarter: 2006Q1

REPORT INFORMATION
  Report Type: 
  Country: None (occurrence: None)
  Receive Date: 20060328
  Receipt Date: 20060202
  Transmission Date: 20060701
  Serious: Yes (Hospitalization)
  Sender: FDA-Public Use
  Company Number: 06P-163-0323893-00

PATIENT
  Age: 76 Year
  Sex: Male
  Weight: 90.7194 kg

DRUGS (11)
  1. HUMIRA [Suspect]
     Indication: RHEUMATOID ARTHRITIS
     Dosage: 40 MG, 1 IN 2 WK, SUBCUTANEOUS
     Route: 058
     Dates: start: 20050101
  2. ATORVASTATIN CALCIUM [Concomitant]
  3. CLOPIDOGREL BISULFATE [Concomitant]
  4. METFORMIN [Concomitant]
  5. LANSOPRAZOLE [Concomitant]
  6. FOLIC ACID [Concomitant]
  7. METOPROLOL SUCCINATE [Concomitant]
  8. AMLODIPINE BESYLATE [Concomitant]
  9. LARADINE [Concomitant]
  10. CALCIUM GLUCONATE [Concomitant]
  11. COMBIVENT [Concomitant]

REACTIONS (1)
  - MYOCARDIAL INFARCTION [None]
